FAERS Safety Report 9843859 (Version 1)
Quarter: 2013Q4

REPORT INFORMATION
  Report Type: Spontaneous
  Country: US (occurrence: None)
  Receive Date: 20131223
  Receipt Date: 20131223
  Transmission Date: 20140711
  Serious: Yes (Other)
  Sender: FDA-Public Use
  Company Number: 1000051745

PATIENT
  Sex: Female

DRUGS (2)
  1. LINZESS [Suspect]
     Dates: start: 201311
  2. LAXATIVE (SENNOSIDES A AND B) [Suspect]
     Dosage: 1 DOSE (1 DOSE)
     Dates: start: 20131122

REACTIONS (2)
  - Abdominal pain [None]
  - Diarrhoea [None]
